FAERS Safety Report 4531442-1 (Version None)
Quarter: 2004Q4

REPORT INFORMATION
  Report Type: 
  Country: None (occurrence: None)
  Receive Date: 20041216
  Receipt Date: 20041202
  Transmission Date: 20050328
  Serious: Yes (Death)
  Sender: FDA-Public Use
  Company Number: S04-USA-06568-01

PATIENT
  Age: 37 Year
  Sex: Male
  Weight: 75.2971 kg

DRUGS (10)
  1. CELEXA [Suspect]
     Indication: DEPRESSION
     Dosage: 20 MG QD PO
     Route: 048
     Dates: start: 20020101, end: 20030311
  2. ETHANOL [Suspect]
  3. NEURONTIN [Concomitant]
  4. XANAX [Concomitant]
  5. ZYRTEC [Concomitant]
  6. GINKO BILOBA [Concomitant]
  7. CAPTOPRIL [Concomitant]
  8. CIPRO [Concomitant]
  9. PRILOSEC [Concomitant]
  10. AMBIEN [Concomitant]

REACTIONS (7)
  - ACCIDENTAL DEATH [None]
  - BLOOD ALCOHOL INCREASED [None]
  - CARDIOMEGALY [None]
  - DIABETES MELLITUS NON-INSULIN-DEPENDENT [None]
  - PULMONARY CONGESTION [None]
  - PULMONARY OEDEMA [None]
  - VENTRICULAR HYPERTROPHY [None]
